FAERS Safety Report 21614511 (Version 1)
Quarter: 2022Q4

REPORT INFORMATION
  Report Type: Spontaneous
  Country: US (occurrence: US)
  Receive Date: 20221118
  Receipt Date: 20221118
  Transmission Date: 20230113
  Serious: No
  Sender: FDA-Public Use
  Company Number: US-BAYER-2022A150089

PATIENT
  Age: 89 Year
  Sex: Female

DRUGS (1)
  1. MIRENA [Suspect]
     Active Substance: LEVONORGESTREL
     Indication: Haemorrhage
     Dosage: 20?G/DAY
     Route: 015
     Dates: start: 20221025, end: 20221025

REACTIONS (3)
  - Contraindicated device used [Unknown]
  - Medical device monitoring error [None]
  - Complication of device insertion [None]

NARRATIVE: CASE EVENT DATE: 20221025
